FAERS Safety Report 22677411 (Version 3)
Quarter: 2023Q4

REPORT INFORMATION
  Report Type: Spontaneous
  Country: US (occurrence: US)
  Receive Date: 20230706
  Receipt Date: 20231109
  Transmission Date: 20240110
  Serious: Yes (Hospitalization, Other)
  Sender: FDA-Public Use
  Company Number: US-PFIZER INC-202300238296

PATIENT
  Age: 71 Year
  Sex: Female
  Weight: 86.64 kg

DRUGS (3)
  1. OXBRYTA [Suspect]
     Active Substance: VOXELOTOR
     Indication: Sickle cell trait
     Dosage: 3 DF, 1X/DAY, [3 TABLETS ONCE A DAY]
     Dates: start: 202304
  2. OXBRYTA [Suspect]
     Active Substance: VOXELOTOR
     Dosage: UNK, DAILY, [TAKES PRODUCT AT NIGHT]
     Dates: start: 20230602
  3. OXBRYTA [Suspect]
     Active Substance: VOXELOTOR
     Dosage: 1500 MG, 1X/DAY
     Route: 048
     Dates: start: 202303

REACTIONS (16)
  - Sickle cell anaemia with crisis [Unknown]
  - Arthritis bacterial [Recovered/Resolved]
  - Headache [Recovering/Resolving]
  - Illness [Unknown]
  - Pain in extremity [Unknown]
  - Joint swelling [Unknown]
  - Pain [Unknown]
  - Limb discomfort [Unknown]
  - Therapeutic response unexpected [Unknown]
  - Haemoglobin decreased [Unknown]
  - Sluggishness [Unknown]
  - Faeces soft [Unknown]
  - Nausea [Recovering/Resolving]
  - Flatulence [Recovering/Resolving]
  - Brain fog [Unknown]
  - Migraine [Unknown]

NARRATIVE: CASE EVENT DATE: 20230101
